FAERS Safety Report 13552846 (Version 3)
Quarter: 2017Q3

REPORT INFORMATION
  Report Type: Report from Study
  Country: US (occurrence: US)
  Receive Date: 20170517
  Receipt Date: 20170915
  Transmission Date: 20171127
  Serious: Yes (Hospitalization)
  Sender: FDA-Public Use
  Company Number: US-BIOGEN-2017BI00401692

PATIENT
  Age: 69 Year
  Sex: Female

DRUGS (1)
  1. TECFIDERA [Suspect]
     Active Substance: DIMETHYL FUMARATE
     Indication: MULTIPLE SCLEROSIS
     Dosage: MAINTENANCE DOSE
     Route: 048
     Dates: start: 201701

REACTIONS (3)
  - Femur fracture [Not Recovered/Not Resolved]
  - Fall [Recovered/Resolved]
  - Knee arthroplasty [Unknown]

NARRATIVE: CASE EVENT DATE: 201703
